FAERS Safety Report 8324931-5 (Version None)
Quarter: 2012Q2

REPORT INFORMATION
  Report Type: 
  Country: None (occurrence: None)
  Receive Date: 20120501
  Receipt Date: 20120424
  Transmission Date: 20120825
  Serious: Yes (Hospitalization)
  Sender: FDA-Public Use
  Company Number: FR-ASTELLAS-2012EU002282

PATIENT
  Sex: Female
  Weight: 54 kg

DRUGS (4)
  1. NIFLURIL [Concomitant]
     Indication: ANTIINFLAMMATORY THERAPY
     Dosage: 1 DF, BID
     Route: 054
     Dates: start: 20111118, end: 20120101
  2. VESICARE [Suspect]
     Dosage: 1 DF, UID/QD
     Route: 065
     Dates: start: 20110929, end: 20120410
  3. KETOPROFEN [Concomitant]
     Dosage: UNK
     Route: 065
     Dates: start: 20110929
  4. PANTOPRAZOLE [Concomitant]
     Dosage: UNK
     Route: 065
     Dates: start: 20120119, end: 20120410

REACTIONS (8)
  - SKIN EXFOLIATION [None]
  - DRY EYE [None]
  - CONSTIPATION [None]
  - DRY MOUTH [None]
  - BURNING SENSATION [None]
  - PARAESTHESIA [None]
  - DRY THROAT [None]
  - DRY SKIN [None]
